FAERS Safety Report 15716946 (Version 1)
Quarter: 2018Q4

REPORT INFORMATION
  Report Type: Spontaneous
  Country: US (occurrence: US)
  Receive Date: 20181129
  Receipt Date: 20181129
  Transmission Date: 20190205
  Serious: No
  Sender: FDA-Public Use
  Company Number: None

PATIENT

DRUGS (2)
  1. GLYCOPYRROLATE. [Suspect]
     Active Substance: GLYCOPYRROLATE
  2. NALOXONE HCL [Suspect]
     Active Substance: NALOXONE HYDROCHLORIDE

REACTIONS (2)
  - Product appearance confusion [None]
  - Wrong product administered [None]
